FAERS Safety Report 5255966-7 (Version None)
Quarter: 2007Q1

REPORT INFORMATION
  Report Type: 
  Country: None (occurrence: None)
  Receive Date: 20070306
  Receipt Date: 20070221
  Transmission Date: 20070707
  Serious: Yes (Other)
  Sender: FDA-Public Use
  Company Number: FR-ELI_LILLY_AND_COMPANY-FR200701002162

PATIENT
  Age: 83 Year
  Sex: Female

DRUGS (4)
  1. FORTEO [Suspect]
     Indication: OSTEOPOROSIS
     Dosage: 20 UG, DAILY (1/D)
     Route: 058
     Dates: start: 20051129
  2. NITRODERM [Concomitant]
     Route: 062
     Dates: start: 20040901
  3. NITROGLYCERIN [Concomitant]
     Dosage: UNK, AS NEEDED
     Route: 060
     Dates: start: 20040901
  4. EFFERALGAN CODEINE [Concomitant]
     Indication: PAIN
     Dosage: UNK, AS NEEDED
     Route: 048

REACTIONS (3)
  - PAIN IN EXTREMITY [None]
  - PALPITATIONS [None]
  - PULMONARY EMBOLISM [None]
